FAERS Safety Report 14790799 (Version 2)
Quarter: 2018Q2

REPORT INFORMATION
  Report Type: Spontaneous
  Country: US (occurrence: US)
  Receive Date: 20180423
  Receipt Date: 20180516
  Transmission Date: 20180711
  Serious: Yes (Other)
  Sender: FDA-Public Use
  Company Number: US-009507513-1804USA009472

PATIENT
  Age: 22 Year
  Sex: Female
  Weight: 110.2 kg

DRUGS (1)
  1. NEXPLANON [Suspect]
     Active Substance: ETONOGESTREL
     Indication: CONTRACEPTION
     Dosage: 1 ROD, ARM
     Route: 059
     Dates: start: 2015, end: 20180419

REACTIONS (4)
  - Device dislocation [Recovered/Resolved]
  - Headache [Recovering/Resolving]
  - Menorrhagia [Recovering/Resolving]
  - Alopecia [Recovering/Resolving]

NARRATIVE: CASE EVENT DATE: 20180418
